FAERS Safety Report 24698337 (Version 1)
Quarter: 2024Q4

REPORT INFORMATION
  Report Type: Spontaneous
  Country: CN (occurrence: CN)
  Receive Date: 20241204
  Receipt Date: 20241204
  Transmission Date: 20250115
  Serious: Yes (Hospitalization)
  Sender: MERCK
  Company Number: CN-009507513-2412CHN000430

PATIENT
  Age: 53 Year
  Sex: Female

DRUGS (1)
  1. STEGLATRO [Suspect]
     Active Substance: ERTUGLIFLOZIN PIDOLATE
     Indication: Diabetes mellitus management
     Dosage: 5 MILLIGRAM, QD
     Route: 048
     Dates: start: 20240508, end: 20240703

REACTIONS (3)
  - Urinary tract infection [Recovered/Resolved]
  - Upper respiratory tract infection [Unknown]
  - Hypophagia [Unknown]

NARRATIVE: CASE EVENT DATE: 20240613
